FAERS Safety Report 11722560 (Version 1)
Quarter: 2015Q4

REPORT INFORMATION
  Report Type: Spontaneous
  Country: US (occurrence: US)
  Receive Date: 20151111
  Receipt Date: 20151111
  Transmission Date: 20160304
  Serious: No
  Sender: FDA-Public Use
  Company Number: PHEH2015US022780

PATIENT
  Age: 49 Year
  Sex: Male

DRUGS (1)
  1. GLEEVEC [Suspect]
     Active Substance: IMATINIB MESYLATE
     Indication: WHITE BLOOD CELL DISORDER
     Dosage: 400 MG, QD
     Route: 048
     Dates: start: 20130802

REACTIONS (2)
  - Hepatic enzyme increased [Unknown]
  - Off label use [Unknown]
